FAERS Safety Report 20163743 (Version 2)
Quarter: 2021Q4

REPORT INFORMATION
  Report Type: Report from Study
  Country: US (occurrence: US)
  Receive Date: 20211209
  Receipt Date: 20211213
  Transmission Date: 20220303
  Serious: Yes (Hospitalization)
  Sender: FDA-Public Use
  Company Number: US-SANOFI-00442006

PATIENT
  Age: 74 Year
  Sex: Female

DRUGS (5)
  1. DUPILUMAB [Suspect]
     Active Substance: DUPILUMAB
     Indication: Asthma
     Dosage: 600 MG, 1X
     Route: 058
     Dates: start: 20201008, end: 20201008
  2. DUPILUMAB [Suspect]
     Active Substance: DUPILUMAB
     Dosage: 300 MG, QOW
     Route: 058
     Dates: start: 20201022
  3. PREDNISONE [Suspect]
     Active Substance: PREDNISONE
     Dosage: UNK
  4. SPIRIVA [Concomitant]
     Active Substance: TIOTROPIUM BROMIDE MONOHYDRATE
     Indication: Asthma
  5. BREO ELLIPTA [Concomitant]
     Active Substance: FLUTICASONE FUROATE\VILANTEROL TRIFENATATE
     Indication: Asthma

REACTIONS (11)
  - Bedridden [Unknown]
  - Skin wound [Not Recovered/Not Resolved]
  - Haematoma [Recovered/Resolved]
  - Skin atrophy [Not Recovered/Not Resolved]
  - Asthenia [Recovering/Resolving]
  - Dizziness postural [Unknown]
  - Colitis [Unknown]
  - Fatigue [Not Recovered/Not Resolved]
  - Conjunctivitis [Not Recovered/Not Resolved]
  - Gait disturbance [Recovering/Resolving]
  - Inappropriate schedule of product administration [Unknown]
